FAERS Safety Report 4281529-6 (Version None)
Quarter: 2004Q1

REPORT INFORMATION
  Report Type: 
  Country: None (occurrence: None)
  Receive Date: 20040112
  Receipt Date: 20031002
  Transmission Date: 20041129
  Serious: Yes (Other)
  Sender: FDA-Public Use
  Company Number: 344121

PATIENT
  Age: 40 Year
  Sex: Male
  Weight: 68 kg

DRUGS (2)
  1. FUZEON [Suspect]
     Indication: DRUG USE FOR UNKNOWN INDICATION
     Dosage: 90MG 2 PER DAY SUBCUTANEOUS
     Route: 058
     Dates: start: 20030804
  2. FUZEON [Suspect]
     Indication: DRUG USE FOR UNKNOWN INDICATION
     Dosage: 0.9CC 2 PER DAY SUBCUTANEOUS
     Route: 058

REACTIONS (4)
  - INJECTION SITE REACTION [None]
  - MEDICATION ERROR [None]
  - NO ADVERSE DRUG EFFECT [None]
  - SKIN DISORDER [None]
